FAERS Safety Report 9283120 (Version 1)
Quarter: 2013Q2

REPORT INFORMATION
  Report Type: Spontaneous
  Country: US (occurrence: US)
  Receive Date: 20130510
  Receipt Date: 20130510
  Transmission Date: 20140414
  Serious: No
  Sender: FDA-Public Use
  Company Number: US-GLAXOSMITHKLINE-A0981287A

PATIENT
  Age: 64 Year
  Sex: Female
  Weight: 69.3 kg

DRUGS (4)
  1. TYKERB [Suspect]
     Indication: BREAST CANCER FEMALE
     Dosage: 1250MG PER DAY
     Route: 048
     Dates: start: 20111223
  2. NEXIUM [Concomitant]
  3. HYDROCHLOROTHIAZIDE [Concomitant]
  4. NORVASC [Concomitant]

REACTIONS (3)
  - Local swelling [Not Recovered/Not Resolved]
  - Rash [Unknown]
  - Skin tightness [Not Recovered/Not Resolved]
